FAERS Safety Report 6962913-6 (Version None)
Quarter: 2010Q3

REPORT INFORMATION
  Report Type: 
  Country: None (occurrence: None)
  Receive Date: 20100902
  Receipt Date: 20100823
  Transmission Date: 20110219
  Serious: Yes (Death, Other)
  Sender: FDA-Public Use
  Company Number: DE-GENZYME-THYM-1001793

PATIENT
  Age: 60 Year
  Sex: Male

DRUGS (4)
  1. THYMOGLOBULIN [Suspect]
     Indication: BONE MARROW CONDITIONING REGIMEN
     Dosage: 380 MG, UNK
     Route: 042
  2. TREOSULFAN [Concomitant]
     Indication: BONE MARROW CONDITIONING REGIMEN
     Dosage: 30 G/M2, UNK
  3. FLUDARABINE [Concomitant]
     Indication: BONE MARROW CONDITIONING REGIMEN
     Dosage: 150 MG/M2, UNK
  4. RITUXIMAB [Concomitant]
     Indication: HAIRY CELL LEUKAEMIA
     Dosage: UNK
     Dates: start: 19990701

REACTIONS (3)
  - CHRONIC GRAFT VERSUS HOST DISEASE [None]
  - HAIRY CELL LEUKAEMIA [None]
  - LARGE INTESTINE PERFORATION [None]
